FAERS Safety Report 5703541-X (Version None)
Quarter: 2008Q2

REPORT INFORMATION
  Report Type: 
  Country: None (occurrence: None)
  Receive Date: 20080409
  Receipt Date: 20080401
  Transmission Date: 20081010
  Serious: Yes (Hospitalization)
  Sender: FDA-Public Use
  Company Number: CHPA2008US05847

PATIENT
  Age: 32 Year
  Sex: Female

DRUGS (2)
  1. 4 WAY FAST ACTING NASAL SPRAY (NCH)(PHENYLEPHRINE) NASAL SPRAY [Suspect]
     Indication: NASAL CONGESTION
     Dosage: 9 TO 10 TIMES DAILY, INHALATION; ONCE/SINGLE, NASAL
     Dates: start: 20080322, end: 20080330
  2. 4 WAY FAST ACTING NASAL SPRAY (NCH)(PHENYLEPHRINE) NASAL SPRAY [Suspect]
     Indication: NASAL CONGESTION
     Dosage: 9 TO 10 TIMES DAILY, INHALATION; ONCE/SINGLE, NASAL
     Dates: start: 20080331, end: 20080331

REACTIONS (2)
  - INTENTIONAL DRUG MISUSE [None]
  - PALPITATIONS [None]
